FAERS Safety Report 5232489-2 (Version None)
Quarter: 2007Q1

REPORT INFORMATION
  Report Type: 
  Country: None (occurrence: None)
  Receive Date: 20061205
  Receipt Date: 20061019
  Transmission Date: 20070707
  Serious: Yes (Hospitalization)
  Sender: FDA-Public Use
  Company Number: 06P-163-0347668-00

PATIENT
  Age: 68 Year
  Sex: Male
  Weight: 57.6068 kg

DRUGS (7)
  1. TRICOR [Suspect]
     Indication: BLOOD CHOLESTEROL
     Dosage: 145 MG, 1 IN 1 D, PER ORAL
     Route: 048
     Dates: start: 20060901
  2. PRAVASTATIN SODIUM [Concomitant]
  3. DIGOXIN [Concomitant]
  4. AMIODARONE HCL [Concomitant]
  5. CLOPIDOGREL BISULFATE [Concomitant]
  6. LEVOTHYROXINE SODIUM [Concomitant]
  7. DOXYCILLIN [Concomitant]

REACTIONS (1)
  - MUSCULAR WEAKNESS [None]
